FAERS Safety Report 19323547 (Version 1)
Quarter: 2021Q2

REPORT INFORMATION
  Report Type: Spontaneous
  Country: NG (occurrence: NG)
  Receive Date: 20210528
  Receipt Date: 20210528
  Transmission Date: 20210717
  Serious: Yes (Other)
  Sender: FDA-Public Use
  Company Number: NG-SUN PHARMACEUTICAL INDUSTRIES LTD-2021R1-298441

PATIENT
  Age: 21 Year
  Sex: Male

DRUGS (1)
  1. PENTAZOCINE [Suspect]
     Active Substance: PENTAZOCINE
     Indication: MALARIA
     Dosage: UNK
     Route: 065

REACTIONS (1)
  - Oesophageal rupture [Recovered/Resolved]
